FAERS Safety Report 18449281 (Version 1)
Quarter: 2020Q4

REPORT INFORMATION
  Report Type: Spontaneous
  Country: US (occurrence: US)
  Receive Date: 20201102
  Receipt Date: 20201102
  Transmission Date: 20210114
  Serious: No
  Sender: FDA-Public Use
  Company Number: US-SA-2020SA302361

PATIENT

DRUGS (1)
  1. ALLEGRA [Suspect]
     Active Substance: FEXOFENADINE HYDROCHLORIDE
     Dosage: 0.5 DF,
     Route: 065

REACTIONS (1)
  - Wrong technique in product usage process [Unknown]
